FAERS Safety Report 6377117-8 (Version None)
Quarter: 2009Q3

REPORT INFORMATION
  Report Type: 
  Country: None (occurrence: None)
  Receive Date: 20090923
  Receipt Date: 20090923
  Transmission Date: 20100115
  Serious: Yes (Hospitalization, Other)
  Sender: FDA-Public Use
  Company Number: None

PATIENT
  Age: 59 Year
  Sex: Male
  Weight: 52.4 kg

DRUGS (1)
  1. PHENYTOIN [Suspect]
     Indication: CONVULSION
     Dosage: 200MG BID PO
     Route: 048
     Dates: start: 20090417, end: 20090804

REACTIONS (7)
  - CONFUSIONAL STATE [None]
  - DEPRESSION [None]
  - DISORIENTATION [None]
  - MENTAL STATUS CHANGES [None]
  - SEDATION [None]
  - SUICIDAL IDEATION [None]
  - THERAPEUTIC AGENT TOXICITY [None]
